FAERS Safety Report 17194811 (Version 5)
Quarter: 2020Q1

REPORT INFORMATION
  Report Type: Spontaneous
  Country: BE (occurrence: BE)
  Receive Date: 20191224
  Receipt Date: 20200206
  Transmission Date: 20200409
  Serious: No
  Sender: FDA-Public Use
  Company Number: BE-ALLERGAN-1952090US

PATIENT
  Sex: Female

DRUGS (2)
  1. INFLIXIMAB [Suspect]
     Active Substance: INFLIXIMAB
     Indication: MATERNAL EXPOSURE DURING PREGNANCY
     Dosage: UNK
     Route: 064
  2. MESALAZINE UNK [Suspect]
     Active Substance: MESALAMINE
     Indication: MATERNAL EXPOSURE DURING PREGNANCY
     Dosage: 3 G, QD
     Route: 064

REACTIONS (1)
  - No adverse event [Unknown]
